FAERS Safety Report 13871131 (Version 1)
Quarter: 2017Q3

REPORT INFORMATION
  Report Type: Spontaneous
  Country: FR (occurrence: FR)
  Receive Date: 20170816
  Receipt Date: 20170816
  Transmission Date: 20171127
  Serious: Yes (Other)
  Sender: FDA-Public Use
  Company Number: FR-TEVA-794896ROM

PATIENT
  Sex: Male

DRUGS (4)
  1. CARBOPLATINE [Suspect]
     Active Substance: CARBOPLATIN
     Indication: PLEURAL MESOTHELIOMA MALIGNANT
     Route: 065
     Dates: start: 201609, end: 201701
  2. AVASTIN [Suspect]
     Active Substance: BEVACIZUMAB
     Indication: PLEURAL MESOTHELIOMA MALIGNANT
     Route: 065
     Dates: start: 201609, end: 201701
  3. ALIMTA [Suspect]
     Active Substance: PEMETREXED DISODIUM
     Indication: PLEURAL MESOTHELIOMA MALIGNANT
     Route: 065
     Dates: start: 201609, end: 201701
  4. AVASTIN [Suspect]
     Active Substance: BEVACIZUMAB
     Dates: start: 201701, end: 201707

REACTIONS (1)
  - Drug resistance [Unknown]
